FAERS Safety Report 5171228-0 (Version None)
Quarter: 2006Q4

REPORT INFORMATION
  Report Type: 
  Country: None (occurrence: None)
  Receive Date: 20061213
  Receipt Date: 20061208
  Transmission Date: 20070319
  Serious: Yes (Other)
  Sender: FDA-Public Use
  Company Number: GB-BRISTOL-MYERS SQUIBB COMPANY-13607387

PATIENT
  Age: 5 Decade
  Sex: Female

DRUGS (2)
  1. KENALOG-40 [Suspect]
     Indication: CARPAL TUNNEL SYNDROME
     Route: 030
  2. ISTIN [Concomitant]
     Indication: HYPERTENSION

REACTIONS (1)
  - ISCHAEMIA [None]
